FAERS Safety Report 7000416-3 (Version None)
Quarter: 2010Q3

REPORT INFORMATION
  Report Type: 
  Country: None (occurrence: None)
  Receive Date: 20100920
  Receipt Date: 20090811
  Transmission Date: 20110219
  Serious: No
  Sender: FDA-Public Use
  Company Number: US-ASTRAZENECA-2009SE07576

PATIENT
  Sex: Male

DRUGS (4)
  1. SEROQUEL [Suspect]
     Route: 048
  2. MARIJUANA [Concomitant]
  3. COCAINE [Concomitant]
  4. ANTIHISTAMINES [Concomitant]

REACTIONS (1)
  - INJURY [None]
